FAERS Safety Report 16644372 (Version 1)
Quarter: 2019Q3

REPORT INFORMATION
  Report Type: Spontaneous
  Country: US (occurrence: US)
  Receive Date: 20190729
  Receipt Date: 20190729
  Transmission Date: 20191004
  Serious: Yes (Other)
  Sender: FDA-Public Use
  Company Number: PHEH2019US030879

PATIENT
  Sex: Male

DRUGS (1)
  1. ENTRESTO [Suspect]
     Active Substance: SACUBITRIL\VALSARTAN
     Indication: LEFT VENTRICULAR FAILURE
     Dosage: 50 MG (24/26 MG), BID
     Route: 048

REACTIONS (3)
  - Renal disorder [Recovering/Resolving]
  - Blood urea abnormal [Recovering/Resolving]
  - Blood creatinine abnormal [Recovering/Resolving]
